FAERS Safety Report 22344360 (Version 1)
Quarter: 2023Q2

REPORT INFORMATION
  Report Type: Spontaneous
  Country: US (occurrence: None)
  Receive Date: 20230519
  Receipt Date: 20230519
  Transmission Date: 20230722
  Serious: Yes (Hospitalization)
  Sender: FDA-Public Use
  Company Number: US-ROCHE-3349813

PATIENT
  Age: 48 Year
  Sex: Female

DRUGS (4)
  1. XOLAIR [Suspect]
     Active Substance: OMALIZUMAB
     Indication: Obstructive airways disorder
     Route: 065
  2. DUPIXENT [Suspect]
     Active Substance: DUPILUMAB
     Indication: Asthma
     Route: 058
     Dates: start: 202110
  3. DUPIXENT [Suspect]
     Active Substance: DUPILUMAB
     Indication: Obstructive airways disorder
     Dosage: VIA PRE FILLED PEN
     Route: 065
  4. DUPIXENT [Suspect]
     Active Substance: DUPILUMAB
     Dosage: MOST RECENT DOSE 21/JUL/2022
     Route: 065
     Dates: start: 20220707

REACTIONS (13)
  - Asthma [Unknown]
  - Viral infection [Unknown]
  - Body temperature increased [Unknown]
  - Alopecia [Unknown]
  - Suspected COVID-19 [Not Recovered/Not Resolved]
  - Flushing [Unknown]
  - Skin warm [Unknown]
  - Dysphonia [Unknown]
  - Feeling hot [Unknown]
  - Oropharyngeal pain [Unknown]
  - Rash pruritic [Unknown]
  - Rash papular [Unknown]
  - Off label use [Unknown]

NARRATIVE: CASE EVENT DATE: 20220802
